FAERS Safety Report 9272381 (Version 1)
Quarter: 2013Q2

REPORT INFORMATION
  Report Type: Spontaneous
  Country: US (occurrence: US)
  Receive Date: 20130506
  Receipt Date: 20130506
  Transmission Date: 20140414
  Serious: No
  Sender: FDA-Public Use
  Company Number: US-ASTRAZENECA-2012SE93921

PATIENT
  Age: 86 Year
  Sex: Female

DRUGS (8)
  1. PRILOSEC OTC [Suspect]
     Route: 048
     Dates: start: 20121124, end: 20121125
  2. NORVASC [Concomitant]
  3. ONE CAPS [Concomitant]
  4. COUMADIN [Concomitant]
  5. CALCIUM [Concomitant]
  6. SOTALOL [Concomitant]
  7. LIPITOR [Concomitant]
  8. ZANTAC [Concomitant]

REACTIONS (6)
  - Feeling abnormal [Recovered/Resolved]
  - Abdominal pain upper [Recovered/Resolved]
  - Abdominal discomfort [Recovered/Resolved]
  - Flatulence [Recovered/Resolved]
  - Eructation [Recovered/Resolved]
  - Labelled drug-drug interaction medication error [Unknown]
